FAERS Safety Report 20060550 (Version 1)
Quarter: 2021Q4

REPORT INFORMATION
  Report Type: Spontaneous
  Country: IR (occurrence: IR)
  Receive Date: 20211112
  Receipt Date: 20211112
  Transmission Date: 20220303
  Serious: Yes (Hospitalization, Other)
  Sender: FDA-Public Use
  Company Number: IR-CIPLA LTD.-2021IR07370

PATIENT

DRUGS (1)
  1. BLEOMYCIN SULFATE [Suspect]
     Active Substance: BLEOMYCIN SULFATE
     Indication: Pneumothorax spontaneous
     Dosage: 60 UNITS DISSOLVED IN 50 ML SODIUM CHLORIDE 0.9%, UNK
     Route: 065

REACTIONS (4)
  - Pneumothorax spontaneous [Recovered/Resolved]
  - Disease recurrence [Recovered/Resolved]
  - Pleuritic pain [Unknown]
  - Pyrexia [Unknown]
